FAERS Safety Report 9780653 (Version 2)
Quarter: 2014Q1

REPORT INFORMATION
  Report Type: Spontaneous
  Country: FR (occurrence: FR)
  Receive Date: 20131224
  Receipt Date: 20140121
  Transmission Date: 20141002
  Serious: Yes (Other)
  Sender: FDA-Public Use
  Company Number: FR-JNJFOC-20131212160

PATIENT
  Age: 80 Year
  Sex: Male
  Weight: 69 kg

DRUGS (17)
  1. XARELTO [Suspect]
     Indication: ARRHYTHMIA
     Route: 048
     Dates: start: 20130911
  2. XARELTO [Suspect]
     Indication: CEREBROVASCULAR ACCIDENT PROPHYLAXIS
     Route: 048
     Dates: start: 20130911
  3. XARELTO [Suspect]
     Indication: ATRIAL FIBRILLATION
     Route: 048
     Dates: start: 20130911
  4. CARDENSIEL [Suspect]
     Indication: PRODUCT USED FOR UNKNOWN INDICATION
     Route: 065
     Dates: start: 20130911, end: 20131009
  5. AMIODARONE [Concomitant]
     Indication: ATRIAL FIBRILLATION
     Route: 048
     Dates: start: 20131015
  6. AMIODARONE [Concomitant]
     Indication: ARRHYTHMIA
     Route: 048
     Dates: start: 20131015
  7. FUROSEMIDE [Concomitant]
     Indication: RIGHT VENTRICULAR FAILURE
     Route: 065
     Dates: start: 20131011
  8. DETENSIEL [Concomitant]
     Indication: ATRIAL FIBRILLATION
     Route: 048
     Dates: start: 20130911, end: 20131009
  9. DETENSIEL [Concomitant]
     Indication: ARRHYTHMIA
     Route: 048
     Dates: start: 20130911, end: 20131009
  10. ALDACTONE [Concomitant]
     Route: 065
     Dates: start: 20131108
  11. FLUDEX [Concomitant]
     Route: 065
  12. AMLOR [Concomitant]
     Route: 065
  13. TAHOR [Concomitant]
     Route: 065
  14. ZYLORIC [Concomitant]
     Route: 065
  15. TEMESTA [Concomitant]
     Route: 065
  16. XATRAL [Concomitant]
     Route: 065
  17. DAFALGAN [Concomitant]
     Route: 065

REACTIONS (6)
  - Dyspnoea [Recovered/Resolved]
  - Right ventricular failure [Recovering/Resolving]
  - Dyspnoea exertional [Recovered/Resolved]
  - Oedema peripheral [Recovered/Resolved]
  - Abdominal distension [Recovered/Resolved]
  - Weight increased [Recovered/Resolved]
